FAERS Safety Report 9674929 (Version 2)
Quarter: 2013Q4

REPORT INFORMATION
  Report Type: Report from Study
  Country: US (occurrence: US)
  Receive Date: 20131107
  Receipt Date: 20131107
  Transmission Date: 20140711
  Serious: Yes (Hospitalization, Other)
  Sender: FDA-Public Use
  Company Number: US-JNJFOC-20090504519

PATIENT
  Age: 55 Year
  Sex: Female
  Weight: 78.47 kg

DRUGS (7)
  1. INFLIXIMAB [Suspect]
     Indication: PSORIASIS
     Route: 042
  2. INFLIXIMAB [Suspect]
     Indication: PSORIASIS
     Route: 042
     Dates: start: 20080417
  3. INFLIXIMAB [Suspect]
     Indication: PSORIASIS
     Route: 042
     Dates: start: 200803
  4. STEROIDS NOS [Suspect]
     Indication: ALVEOLITIS ALLERGIC
     Dates: start: 200905
  5. TOPICAL CORTICOSTEROIDS [Concomitant]
  6. CALCIPOTRIENE [Concomitant]
  7. ACETAMINOPHEN [Concomitant]

REACTIONS (1)
  - Dyspnoea [Recovered/Resolved]
